FAERS Safety Report 8100273-8 (Version None)
Quarter: 2012Q1

REPORT INFORMATION
  Report Type: 
  Country: None (occurrence: None)
  Receive Date: 20120129
  Receipt Date: 20111117
  Transmission Date: 20120608
  Serious: No
  Sender: FDA-Public Use
  Company Number: US-ABBOTT-11P-163-0875296-00

PATIENT
  Age: 73 Year
  Sex: Female

DRUGS (7)
  1. PREDNISONE [Suspect]
     Indication: RHEUMATOID ARTHRITIS
  2. QUINAPRIL [Concomitant]
     Indication: PRODUCT USED FOR UNKNOWN INDICATION
     Dosage: 20MG DAILY
     Route: 048
  3. HUMIRA [Suspect]
     Indication: RHEUMATOID ARTHRITIS
  4. ATENOLOL [Concomitant]
     Indication: HYPERTENSION
     Dosage: 20MG DAILY
     Route: 048
  5. HUMIRA [Suspect]
     Dosage: INCREASED DOSE FOR 6 WEEKS
  6. ACETAMINOPHEN [Concomitant]
     Indication: PRODUCT USED FOR UNKNOWN INDICATION
  7. MULTI-VITAMIN [Concomitant]
     Indication: PRODUCT USED FOR UNKNOWN INDICATION
     Dosage: DAILY
     Route: 048

REACTIONS (4)
  - LACRIMATION INCREASED [None]
  - VISION BLURRED [None]
  - CATARACT [None]
  - RED BLOOD CELL SEDIMENTATION RATE INCREASED [None]
